FAERS Safety Report 7414495-2 (Version None)
Quarter: 2011Q2

REPORT INFORMATION
  Report Type: 
  Country: None (occurrence: None)
  Receive Date: 20110414
  Receipt Date: 20110407
  Transmission Date: 20111010
  Serious: Yes (Hospitalization)
  Sender: FDA-Public Use
  Company Number: JP-ELI_LILLY_AND_COMPANY-JP201012002436

PATIENT
  Age: 65 Year
  Sex: Male
  Weight: 66.3 kg

DRUGS (14)
  1. PANVITAN [Concomitant]
     Dosage: 0.5 MG, DAILY (1/D)
     Dates: start: 20091014, end: 20100712
  2. TAKEPRON [Concomitant]
     Indication: REFLUX OESOPHAGITIS
     Route: 065
     Dates: start: 20090805, end: 20101031
  3. DECADRON                                /NET/ [Concomitant]
     Indication: PROPHYLAXIS
     Dosage: UNK
     Dates: start: 20100113, end: 20100522
  4. MAGLAX [Concomitant]
     Indication: PROPHYLAXIS
     Dosage: UNK
     Dates: start: 20091119, end: 20100210
  5. HOKUNALIN [Concomitant]
     Indication: CHRONIC OBSTRUCTIVE PULMONARY DISEASE
     Route: 023
     Dates: start: 20091104, end: 20091118
  6. ZOMETA [Concomitant]
     Indication: PROPHYLAXIS
     Dosage: UNK
     Route: 065
     Dates: start: 20100421, end: 20100716
  7. DEXART [Concomitant]
     Dosage: UNK
     Route: 065
     Dates: start: 20091110, end: 20100519
  8. HYDROXOCOBALAMIN ACETATE [Concomitant]
     Dosage: 1 MG, UNK
     Route: 030
     Dates: start: 20091014, end: 20100421
  9. MUCODYNE [Concomitant]
     Indication: BRONCHITIS CHRONIC
     Route: 065
     Dates: start: 20091104, end: 20101031
  10. OXYCONTIN [Concomitant]
     Indication: CANCER PAIN
     Route: 065
     Dates: start: 20090805, end: 20101031
  11. SEROTONE [Concomitant]
     Dosage: UNK
     Route: 065
     Dates: start: 20091110, end: 20100519
  12. PEMETREXED [Suspect]
     Indication: LUNG ADENOCARCINOMA STAGE IV
     Dosage: 850 MG, OTHER
     Route: 042
     Dates: start: 20091110, end: 20100519
  13. LENDORMIN [Concomitant]
     Indication: INSOMNIA
     Route: 065
     Dates: start: 20090805, end: 20101031
  14. CALONAL [Concomitant]
     Indication: CANCER PAIN
     Dosage: UNK
     Route: 065
     Dates: start: 20100108, end: 20100630

REACTIONS (2)
  - C-REACTIVE PROTEIN INCREASED [None]
  - PYREXIA [None]
